FAERS Safety Report 15991645 (Version 1)
Quarter: 2019Q1

REPORT INFORMATION
  Report Type: Spontaneous
  Country: US (occurrence: US)
  Receive Date: 20190221
  Receipt Date: 20190221
  Transmission Date: 20190418
  Serious: No
  Sender: FDA-Public Use
  Company Number: US-JNJFOC-20190204765

PATIENT
  Age: 56 Year
  Sex: Male
  Weight: 86.18 kg

DRUGS (2)
  1. MENS ROGAINE EXTRA STRENGTH [Suspect]
     Active Substance: MINOXIDIL
     Indication: ALOPECIA
     Dosage: HALF CAPFUL ONE TIME.
     Route: 061
     Dates: start: 20190201, end: 201902
  2. MENS ROGAINE EXTRA STRENGTH [Suspect]
     Active Substance: MINOXIDIL
     Route: 061

REACTIONS (1)
  - Erythema [Recovered/Resolved]

NARRATIVE: CASE EVENT DATE: 201902
